FAERS Safety Report 6074043-9 (Version None)
Quarter: 2009Q1

REPORT INFORMATION
  Report Type: 
  Country: None (occurrence: None)
  Receive Date: 20090211
  Receipt Date: 20090205
  Transmission Date: 20090719
  Serious: No
  Sender: FDA-Public Use
  Company Number: A0715901A

PATIENT
  Sex: Male

DRUGS (4)
  1. TRIZIVIR [Suspect]
     Indication: HIV INFECTION
     Dosage: 2TAB PER DAY
     Dates: start: 20080110
  2. COMBIVIR [Suspect]
     Indication: HIV INFECTION
     Dates: start: 20071112
  3. VIRACEPT [Concomitant]
  4. ANTIBIOTIC [Concomitant]

REACTIONS (2)
  - DRUG EXPOSURE DURING PREGNANCY [None]
  - NORMAL NEWBORN [None]
